FAERS Safety Report 5941657-3 (Version None)
Quarter: 2008Q4

REPORT INFORMATION
  Report Type: 
  Country: None (occurrence: None)
  Receive Date: 20081105
  Receipt Date: 20081104
  Transmission Date: 20090506
  Serious: Yes (Death, Hospitalization, Other)
  Sender: FDA-Public Use
  Company Number: BR-ABBOTT-08P-020-0483336-00

PATIENT
  Sex: Male
  Weight: 70 kg

DRUGS (6)
  1. HUMIRA [Suspect]
     Indication: ANKYLOSING SPONDYLITIS
     Dosage: 1APPLICATION EVERY 14 DAYS
     Dates: start: 20060901
  2. HUMIRA [Suspect]
     Indication: RHEUMATOID ARTHRITIS
  3. UNKNOWN ANTIBIOTICS [Suspect]
     Indication: DRUG USE FOR UNKNOWN INDICATION
  4. METHOTREXATE [Concomitant]
     Indication: DRUG USE FOR UNKNOWN INDICATION
  5. UNKNOWN [Concomitant]
     Indication: HYPERTENSION
  6. UNKNOWN [Concomitant]
     Indication: BLOOD CHOLESTEROL INCREASED

REACTIONS (10)
  - BACTERIAL INFECTION [None]
  - HEADACHE [None]
  - IMMUNE SYSTEM DISORDER [None]
  - MULTI-ORGAN FAILURE [None]
  - PNEUMONIA [None]
  - PULMONARY TUBERCULOSIS [None]
  - PYREXIA [None]
  - RENAL FAILURE [None]
  - SEPSIS [None]
  - VIRAL INFECTION [None]
